FAERS Safety Report 9646202 (Version 1)
Quarter: 2013Q4

REPORT INFORMATION
  Report Type: Spontaneous
  Country: GB (occurrence: GB)
  Receive Date: 20131025
  Receipt Date: 20131025
  Transmission Date: 20140711
  Serious: Yes (Life-Threatening, Hospitalization, Other)
  Sender: FDA-Public Use
  Company Number: GB-ACTAVIS-2013-19401

PATIENT
  Age: 93 Year
  Sex: Female
  Weight: 45 kg

DRUGS (5)
  1. INDAPAMIDE (UNKNOWN) [Suspect]
     Indication: HYPERTENSION
     Dosage: 1.5 MG, UNKNOWN; MODIFIED RELEASE
     Route: 048
     Dates: start: 20130810, end: 20130826
  2. PERINDOPRIL [Concomitant]
     Indication: PRODUCT USED FOR UNKNOWN INDICATION
     Dosage: UNK
     Route: 065
  3. SIMVASTATIN [Concomitant]
     Indication: PRODUCT USED FOR UNKNOWN INDICATION
     Dosage: UNK
     Route: 065
  4. ASPIRIN [Concomitant]
     Indication: PRODUCT USED FOR UNKNOWN INDICATION
     Dosage: UNK
     Route: 065
  5. LANSOPRAZOLE [Concomitant]
     Indication: PRODUCT USED FOR UNKNOWN INDICATION
     Dosage: UNK
     Route: 065

REACTIONS (4)
  - Hyponatraemia [Recovered/Resolved]
  - Confusional state [Not Recovered/Not Resolved]
  - Fall [Recovered/Resolved]
  - Nausea [Recovered/Resolved]
